FAERS Safety Report 6311527-X (Version None)
Quarter: 2009Q3

REPORT INFORMATION
  Report Type: 
  Country: None (occurrence: None)
  Receive Date: 20090817
  Receipt Date: 20090811
  Transmission Date: 20100115
  Serious: Yes (Death)
  Sender: FDA-Public Use
  Company Number: US-NOVOPROD-290463

PATIENT
  Age: 30 Year
  Sex: Male

DRUGS (1)
  1. NOVOLOG [Suspect]
     Indication: TYPE 1 DIABETES MELLITUS
     Dosage: 11 IU, SINGLE
     Route: 058

REACTIONS (1)
  - CIRCULATORY COLLAPSE [None]
